FAERS Safety Report 5671933-3 (Version None)
Quarter: 2008Q1

REPORT INFORMATION
  Report Type: 
  Country: None (occurrence: None)
  Receive Date: 20080319
  Receipt Date: 20080311
  Transmission Date: 20080703
  Serious: Yes (Congenital Anomaly, Other)
  Sender: FDA-Public Use
  Company Number: SE-WYE-G01226708

PATIENT
  Sex: Female

DRUGS (6)
  1. EFFEXOR [Suspect]
     Indication: DEPRESSION
  2. OXASCAND [Suspect]
     Indication: NEUROSIS
     Dosage: 15 MG WHEN NEEDED
     Route: 048
  3. FOLACIN [Suspect]
     Route: 048
  4. BEHEPAN [Suspect]
  5. OMEPRAZOLE [Suspect]
     Indication: GASTRITIS
     Route: 048
  6. STRATTERA [Suspect]
     Indication: ATTENTION DEFICIT/HYPERACTIVITY DISORDER

REACTIONS (1)
  - CONGENITAL FOOT MALFORMATION [None]
